FAERS Safety Report 13234643 (Version 1)
Quarter: 2017Q1

REPORT INFORMATION
  Report Type: Report from Study
  Country: DE (occurrence: DE)
  Receive Date: 20170215
  Receipt Date: 20170215
  Transmission Date: 20170428
  Serious: Yes (Disabling)
  Sender: FDA-Public Use
  Company Number: PHHY2017DE021980

PATIENT
  Age: 57 Year
  Sex: Male
  Weight: 95.2 kg

DRUGS (1)
  1. TASIGNA [Suspect]
     Active Substance: NILOTINIB
     Indication: CHRONIC MYELOID LEUKAEMIA
     Dosage: 300 MG, BID
     Route: 065
     Dates: start: 20140127, end: 20170204

REACTIONS (1)
  - Facial paresis [Unknown]

NARRATIVE: CASE EVENT DATE: 20170204
